FAERS Safety Report 16764685 (Version 1)
Quarter: 2019Q3

REPORT INFORMATION
  Report Type: Spontaneous
  Country: US (occurrence: US)
  Receive Date: 20190902
  Receipt Date: 20190902
  Transmission Date: 20191005
  Serious: No
  Sender: FDA-Public Use
  Company Number: US-ASTRAZENECA-2019SF20531

PATIENT

DRUGS (7)
  1. MISOPROSTOL. [Suspect]
     Active Substance: MISOPROSTOL
     Dosage: DOSAGE UNKNOWN UNKNOWN
     Route: 065
  2. TRAZODONE [Concomitant]
     Active Substance: TRAZODONE HYDROCHLORIDE
  3. NIACIN. [Concomitant]
     Active Substance: NIACIN
  4. METFORMIN [Concomitant]
     Active Substance: METFORMIN HYDROCHLORIDE
  5. LAMICTAL [Concomitant]
     Active Substance: LAMOTRIGINE
  6. ALPRAZOLAM. [Suspect]
     Active Substance: ALPRAZOLAM
     Route: 048
  7. QUETIAPINE. [Suspect]
     Active Substance: QUETIAPINE
     Dosage: DOSAGE UNKNOWN UNKNOWN
     Route: 048

REACTIONS (2)
  - Insomnia [Unknown]
  - Drug hypersensitivity [Unknown]
